FAERS Safety Report 8525790 (Version 2)
Quarter: 2013Q4

REPORT INFORMATION
  Report Type: Spontaneous
  Country: US (occurrence: US)
  Receive Date: 20120423
  Receipt Date: 20131126
  Transmission Date: 20140711
  Serious: Yes (Other)
  Sender: FDA-Public Use
  Company Number: US-UCBSA-052336

PATIENT
  Age: 62 Year
  Sex: Male
  Weight: 87.5 kg

DRUGS (13)
  1. LORTAB [Suspect]
     Indication: PAIN
     Dosage: 10/500 MG, 4 PILLS A DAY, FIRST DOSE 8 -10 YEARS AGO
     Route: 048
  2. LORTAB [Suspect]
     Indication: PAIN
     Dosage: 10/500 MG, 4 PILLS A DAY
     Route: 048
     Dates: start: 201202, end: 201202
  3. LORTAB [Suspect]
     Indication: PAIN
     Dosage: DOSE STRENGTH: 10/500;  1 TABLET EVERY 4 HOUR AS NEEDED
     Dates: start: 20131113
  4. MIRALEX [Concomitant]
     Indication: FUNCTIONAL GASTROINTESTINAL DISORDER
     Dosage: 2 CAPULES TWICE A WEEK AS NEEDED
     Route: 048
  5. COZAR [Concomitant]
     Indication: HYPERTENSION
     Route: 048
  6. PREVACID [Concomitant]
     Indication: GASTRIC DISORDER
     Route: 048
  7. PREVACID [Concomitant]
     Indication: GASTRIC DISORDER
     Dosage: 160 MG: FREQUENCY:  1X
     Route: 048
  8. ZETIA [Concomitant]
     Indication: HYPERCHOLESTEROLAEMIA
     Route: 048
  9. ASPIRIN [Concomitant]
     Indication: THROMBOSIS
     Route: 048
  10. UROXATROL [Concomitant]
     Indication: PROSTATIC DISORDER
     Route: 048
  11. METHADONE [Concomitant]
     Indication: PAIN
     Dosage: 2.5 MG IN MORNING AND IN NIGHT
     Route: 048
  12. COMBIVENT [Concomitant]
     Indication: BRONCHITIS CHRONIC
     Dosage: 2 PUFS AS NEEDED
     Route: 048
  13. ALEGRA [Concomitant]
     Indication: HYPERSENSITIVITY

REACTIONS (4)
  - Urticaria [Recovered/Resolved]
  - Pruritus generalised [Recovered/Resolved]
  - Drug ineffective [Unknown]
  - Product quality issue [Unknown]
